FAERS Safety Report 5299988-9 (Version None)
Quarter: 2007Q2

REPORT INFORMATION
  Report Type: 
  Country: None (occurrence: None)
  Receive Date: 20070410
  Receipt Date: 20070328
  Transmission Date: 20071010
  Serious: Yes (Hospitalization)
  Sender: FDA-Public Use
  Company Number: B0465011A

PATIENT
  Age: 57 Year
  Sex: Male

DRUGS (1)
  1. PAXIL [Suspect]

REACTIONS (2)
  - PYREXIA [None]
  - RASH GENERALISED [None]
